FAERS Safety Report 6263425-8 (Version None)
Quarter: 2009Q3

REPORT INFORMATION
  Report Type: 
  Country: None (occurrence: None)
  Receive Date: 20090710
  Receipt Date: 20090115
  Transmission Date: 20100115
  Serious: No
  Sender: FDA-Public Use
  Company Number: A0763603A

PATIENT
  Age: 57 Year
  Sex: Male

DRUGS (5)
  1. FLOVENT [Suspect]
     Indication: ASTHMA
     Dosage: 1PUFF TWICE PER DAY
     Route: 055
     Dates: start: 20090113
  2. TUMS [Suspect]
  3. ACIPHEX [Concomitant]
  4. UNKNOWN MEDICATION [Concomitant]
  5. XANAX [Concomitant]

REACTIONS (3)
  - BLOOD GLUCOSE INCREASED [None]
  - TONGUE DISCOLOURATION [None]
  - TREMOR [None]
